FAERS Safety Report 7587528-0 (Version None)
Quarter: 2011Q3

REPORT INFORMATION
  Report Type: 
  Country: None (occurrence: None)
  Receive Date: 20110704
  Receipt Date: 20110620
  Transmission Date: 20111222
  Serious: Yes (Hospitalization, Other)
  Sender: FDA-Public Use
  Company Number: PHHY2011BR03028

PATIENT
  Sex: Female
  Weight: 70 kg

DRUGS (7)
  1. CLOZAPINE [Suspect]
     Dosage: 100 MG, QD
     Route: 048
  2. CLOZAPINE [Suspect]
     Dosage: 100 MG, 30 TABLETS
     Dates: end: 20110617
  3. TOPIRAMATE [Concomitant]
     Dosage: 50 MG, ONE TABLET IN THE MORNING
     Route: 048
     Dates: end: 20110617
  4. FLUOXETINE HCL [Concomitant]
     Dosage: 20 MG, ONE TABLET IN THE MORNING AND ONE AT NIGHT
     Route: 048
     Dates: end: 20110617
  5. CLONAZEPAM [Concomitant]
     Dosage: 2 MG, ONE TABLET AT NIGHT
     Route: 048
     Dates: end: 20110617
  6. STELAZINE [Concomitant]
     Dosage: ONE TABLET IN THE AFTERNOON AND ONE AT NIGHT
     Route: 048
     Dates: end: 20110617
  7. LITHIUM CARBONATE [Concomitant]
     Dosage: 300 MG, TID
     Route: 048
     Dates: end: 20110617

REACTIONS (6)
  - SEDATION [None]
  - NEOPLASM MALIGNANT [None]
  - DEPRESSION [None]
  - OVERDOSE [None]
  - CONTUSION [None]
  - SUICIDE ATTEMPT [None]
